FAERS Safety Report 8935667 (Version 2)
Quarter: 2013Q2

REPORT INFORMATION
  Report Type: Report from Study
  Country: DE (occurrence: DE)
  Receive Date: 20121130
  Receipt Date: 20130415
  Transmission Date: 20140414
  Serious: Yes (Hospitalization)
  Sender: FDA-Public Use
  Company Number: DE-MILLENNIUM PHARMACEUTICALS, INC.-2012-08084

PATIENT
  Sex: 0

DRUGS (6)
  1. VELCADE [Suspect]
     Indication: PLASMA CELL MYELOMA
     Dosage: 2.39 MG, UNK
     Route: 058
     Dates: start: 20120808, end: 20121005
  2. DEXAMETHASONE [Concomitant]
     Dosage: 40 MG, UNK
     Route: 048
     Dates: start: 20121030, end: 20121102
  3. CYCLOPHOSPHAMIDE [Concomitant]
     Dosage: 1820 MG, UNK
     Route: 042
     Dates: start: 20121030, end: 20121102
  4. DOXORUBICIN [Concomitant]
     Dosage: 27 MG, UNK
     Route: 042
     Dates: start: 20121030, end: 20121102
  5. ACTRAPID                           /00030501/ [Concomitant]
     Indication: DIABETES MELLITUS
     Dosage: UNK
     Dates: end: 20121103
  6. NEULASTA [Concomitant]
     Dosage: 6 MG, UNK
     Route: 042
     Dates: start: 20121103, end: 20121103

REACTIONS (3)
  - Agranulocytosis [Recovered/Resolved]
  - Pyrexia [Recovered/Resolved]
  - Blood glucose increased [Recovered/Resolved]
